FAERS Safety Report 6268007-X (Version None)
Quarter: 2009Q3

REPORT INFORMATION
  Report Type: 
  Country: None (occurrence: None)
  Receive Date: 20090713
  Receipt Date: 20090702
  Transmission Date: 20100115
  Serious: Yes (Death)
  Sender: FDA-Public Use
  Company Number: ADE09-019-L

PATIENT

DRUGS (4)
  1. ONDANSETRON [Suspect]
     Indication: ANTIEMETIC SUPPORTIVE CARE
     Dosage: 32 MG IV ON DAY ONE
     Route: 042
  2. DAXAMETHASONE [Concomitant]
  3. CASOPITANT MESYLATE [Concomitant]
  4. UNKNOWN CHEMOTHERAPY MEDICATION [Concomitant]

REACTIONS (1)
  - DEATH [None]
